FAERS Safety Report 16281200 (Version 1)
Quarter: 2019Q2

REPORT INFORMATION
  Report Type: Spontaneous
  Country: CN (occurrence: CN)
  Receive Date: 20190507
  Receipt Date: 20190507
  Transmission Date: 20190711
  Serious: Yes (Hospitalization)
  Sender: FDA-Public Use
  Company Number: PHHY2019CN099519

PATIENT
  Age: 32 Year
  Sex: Male

DRUGS (1)
  1. TELBIVUDINE [Suspect]
     Active Substance: TELBIVUDINE
     Indication: CHRONIC HEPATITIS B
     Dosage: 600 MG, QD
     Route: 065
     Dates: start: 201603

REACTIONS (15)
  - Vomiting [Recovered/Resolved]
  - Nausea [Unknown]
  - Myalgia [Recovering/Resolving]
  - Metabolic acidosis [Unknown]
  - Mitochondrial myopathy [Recovering/Resolving]
  - Vomiting [Unknown]
  - Hyperuricaemia [Unknown]
  - Nausea [Recovered/Resolved]
  - Hyperlactacidaemia [Unknown]
  - Hepatic steatosis [Unknown]
  - Gastrooesophageal reflux disease [Unknown]
  - Abdominal discomfort [Recovered/Resolved]
  - Blood creatine phosphokinase increased [Unknown]
  - Chronic gastritis [Unknown]
  - Duodenal ulcer [Unknown]
